FAERS Safety Report 8207858-9 (Version None)
Quarter: 2012Q1

REPORT INFORMATION
  Report Type: 
  Country: None (occurrence: None)
  Receive Date: 20120314
  Receipt Date: 20120229
  Transmission Date: 20120608
  Serious: Yes (Other)
  Sender: FDA-Public Use
  Company Number: JP-VALEANT-2012VX001031

PATIENT
  Age: 79 Year
  Sex: Male

DRUGS (4)
  1. FLUOROURACIL [Suspect]
     Route: 065
  2. NEDAPLATIN [Suspect]
     Route: 065
  3. THERAPEUTIC RADIOPHARMACEUTICALS [Concomitant]
     Route: 065
  4. DOCETAXEL [Suspect]
     Route: 065
     Dates: start: 20090901, end: 20100501

REACTIONS (4)
  - BONE MARROW FAILURE [None]
  - DRUG ERUPTION [None]
  - DECREASED APPETITE [None]
  - HYPOAESTHESIA [None]
